FAERS Safety Report 13662312 (Version 1)
Quarter: 2017Q2

REPORT INFORMATION
  Report Type: Report from Study
  Country: US (occurrence: US)
  Receive Date: 20170617
  Receipt Date: 20170617
  Transmission Date: 20170830
  Serious: Yes (Death, Hospitalization)
  Sender: FDA-Public Use
  Company Number: US-TORRENT-00003086

PATIENT
  Age: 81 Year
  Sex: Male

DRUGS (8)
  1. SIMVASTATIN. [Suspect]
     Active Substance: SIMVASTATIN
  2. EZETIMIBE. [Suspect]
     Active Substance: EZETIMIBE
  3. ZOLPIDEM [Suspect]
     Active Substance: ZOLPIDEM\ZOLPIDEM TARTRATE
  4. LISINOPRIL. [Suspect]
     Active Substance: LISINOPRIL
  5. MIRTAZAPINE. [Suspect]
     Active Substance: MIRTAZAPINE
  6. VENLAFAXINE [Suspect]
     Active Substance: VENLAFAXINE HYDROCHLORIDE
  7. LITHIUM. [Suspect]
     Active Substance: LITHIUM
  8. LORAZEPAM. [Suspect]
     Active Substance: LORAZEPAM

REACTIONS (3)
  - Completed suicide [Fatal]
  - Intentional overdose [None]
  - Toxicity to various agents [Fatal]
